FAERS Safety Report 5234896-0 (Version None)
Quarter: 2007Q1

REPORT INFORMATION
  Report Type: 
  Country: None (occurrence: None)
  Receive Date: 20070209
  Receipt Date: 20070201
  Transmission Date: 20070707
  Serious: Yes (Other)
  Sender: FDA-Public Use
  Company Number: US-PFIZER INC-2007008984

PATIENT
  Sex: Female
  Weight: 70.3 kg

DRUGS (11)
  1. CHANTIX [Suspect]
     Indication: SMOKING CESSATION THERAPY
  2. UNIPHYL [Interacting]
     Indication: ASTHMA
  3. ALBUTEROL [Interacting]
     Indication: ASTHMA
     Route: 055
  4. ADVAIR DISKUS 100/50 [Interacting]
     Indication: ASTHMA
     Route: 055
  5. ATROVENT [Interacting]
     Indication: ASTHMA
     Route: 055
  6. EFFEXOR [Concomitant]
  7. TRAZODONE HCL [Concomitant]
  8. RESTORIL [Concomitant]
  9. NAPROXEN [Concomitant]
  10. MILK THISTLE [Concomitant]
  11. CALCIUM [Concomitant]

REACTIONS (2)
  - DRUG INTERACTION [None]
  - DYSPNOEA [None]
